FAERS Safety Report 23394833 (Version 3)
Quarter: 2024Q2

REPORT INFORMATION
  Report Type: Report from Study
  Country: CL (occurrence: CL)
  Receive Date: 20240112
  Receipt Date: 20240408
  Transmission Date: 20240716
  Serious: Yes (Other)
  Sender: FDA-Public Use
  Company Number: CL-JNJFOC-20231270739

PATIENT
  Age: 65 Year
  Sex: Female

DRUGS (11)
  1. SIMPONI [Suspect]
     Active Substance: GOLIMUMAB
     Indication: Rheumatoid arthritis
     Dosage: LAST DOSE ADMINISTERED ON 22-NOV-2023?FORM STRENGTH  50.00 MG / 0.50 ML
     Route: 058
     Dates: start: 20230627
  2. SIMPONI [Suspect]
     Active Substance: GOLIMUMAB
     Route: 058
     Dates: start: 20230626
  3. CELECOXIB [Concomitant]
     Active Substance: CELECOXIB
  4. CALCIUM [Concomitant]
     Active Substance: CALCIUM
  5. ERGOCALCIFEROL [Concomitant]
     Active Substance: ERGOCALCIFEROL
     Dosage: 400 UI
  6. OMEPRAZOLE [Concomitant]
     Active Substance: OMEPRAZOLE
  7. PREGABALIN [Concomitant]
     Active Substance: PREGABALIN
  8. ACETAMINOPHEN [Concomitant]
     Active Substance: ACETAMINOPHEN
     Dosage: 1GR C/12 HRS
  9. PREDNISONE [Concomitant]
     Active Substance: PREDNISONE
  10. FOLIC ACID [Concomitant]
     Active Substance: FOLIC ACID
  11. ATORVASTATIN [Concomitant]
     Active Substance: ATORVASTATIN

REACTIONS (17)
  - Rheumatoid arthritis [Unknown]
  - Haematochezia [Unknown]
  - Memory impairment [Unknown]
  - Dysuria [Unknown]
  - Haemorrhoids [Unknown]
  - Bone pain [Unknown]
  - Malaise [Unknown]
  - Nausea [Unknown]
  - Dyspepsia [Unknown]
  - Gingival recession [Unknown]
  - Alopecia [Unknown]
  - Affective disorder [Unknown]
  - Disturbance in attention [Unknown]
  - Insomnia [Unknown]
  - Gastrointestinal disorder [Unknown]
  - Depression [Unknown]
  - Anxiety [Unknown]

NARRATIVE: CASE EVENT DATE: 20230101
